FAERS Safety Report 5714480-2 (Version None)
Quarter: 2008Q2

REPORT INFORMATION
  Report Type: 
  Country: None (occurrence: None)
  Receive Date: 20080423
  Receipt Date: 20080416
  Transmission Date: 20081010
  Serious: Yes (Other)
  Sender: FDA-Public Use
  Company Number: PHHY2008JP02292

PATIENT
  Age: 68 Year
  Sex: Female

DRUGS (5)
  1. DIOVAN [Suspect]
     Indication: HYPERTENSION
     Dosage: 40MG/DAY
     Route: 048
     Dates: start: 20020710
  2. LOCHOL [Suspect]
     Indication: HYPERLIPIDAEMIA
     Dosage: 40 MG/DAY
     Route: 048
     Dates: start: 20020710
  3. LAMISIL [Suspect]
     Dosage: 125 MG/DAY
     Route: 048
     Dates: start: 20071221, end: 20080226
  4. DEPAS [Concomitant]
     Dosage: 0.5 MG, UNK
     Route: 048
     Dates: start: 20020710
  5. GAMMARIZA [Concomitant]
     Dosage: 50 MG, UNK
     Route: 048
     Dates: start: 20020710

REACTIONS (1)
  - BLOOD CREATINE PHOSPHOKINASE INCREASED [None]
